FAERS Safety Report 10006796 (Version 2)
Quarter: 2014Q1

REPORT INFORMATION
  Report Type: Spontaneous
  Country: GB (occurrence: None)
  Receive Date: 20140311
  Receipt Date: 20140331
  Transmission Date: 20141002
  Serious: Yes (Other)
  Sender: FDA-Public Use
  Company Number: AUR-APL-2014-02647

PATIENT
  Age: 74 Year
  Sex: Female

DRUGS (2)
  1. CLOPIDOGREL (CLOPIDOGREL) [Suspect]
     Indication: ANTIPLATELET THERAPY
  2. GINKGO BILOBA (GINKGO BILOBA) [Suspect]
     Indication: MENOPAUSAL SYMPTOMS

REACTIONS (8)
  - Contusion [None]
  - Vaginal haemorrhage [None]
  - Dizziness [None]
  - Feeling abnormal [None]
  - Chromaturia [None]
  - Haematuria [None]
  - Drug interaction [None]
  - Self-medication [None]
